FAERS Safety Report 24707370 (Version 3)
Quarter: 2024Q4

REPORT INFORMATION
  Report Type: Spontaneous
  Country: JP (occurrence: JP)
  Receive Date: 20241206
  Receipt Date: 20241207
  Transmission Date: 20250115
  Serious: Yes (Other)
  Sender: ALEXION PHARMACEUTICALS
  Company Number: JP-ASTRAZENECA-240082793_012620_P_1

PATIENT
  Age: 74 Year
  Weight: 45 kg

DRUGS (56)
  1. FASLODEX [Suspect]
     Active Substance: FULVESTRANT
     Dosage: DOSE UNKNOWN
  2. FASLODEX [Suspect]
     Active Substance: FULVESTRANT
     Dosage: DOSE UNKNOWN
     Route: 042
  3. FASLODEX [Suspect]
     Active Substance: FULVESTRANT
     Dosage: DOSE UNKNOWN
  4. FASLODEX [Suspect]
     Active Substance: FULVESTRANT
     Dosage: DOSE UNKNOWN
     Route: 042
  5. FASLODEX [Suspect]
     Active Substance: FULVESTRANT
     Dosage: 500 MILLIGRAM
  6. FASLODEX [Suspect]
     Active Substance: FULVESTRANT
     Dosage: 500 MILLIGRAM
     Route: 030
  7. FASLODEX [Suspect]
     Active Substance: FULVESTRANT
     Dosage: 500 MILLIGRAM
  8. FASLODEX [Suspect]
     Active Substance: FULVESTRANT
     Dosage: 500 MILLIGRAM
     Route: 030
  9. FASLODEX [Suspect]
     Active Substance: FULVESTRANT
     Dosage: 500 MILLIGRAM
  10. FASLODEX [Suspect]
     Active Substance: FULVESTRANT
     Dosage: 500 MILLIGRAM
     Route: 030
  11. FASLODEX [Suspect]
     Active Substance: FULVESTRANT
     Dosage: 500 MILLIGRAM
  12. FASLODEX [Suspect]
     Active Substance: FULVESTRANT
     Dosage: 500 MILLIGRAM
     Route: 030
  13. TRUQAP [Suspect]
     Active Substance: CAPIVASERTIB
     Dosage: DOSE UNKNOWN, 4 DAYS IN A ROW, FOLLOWED BY 3 DAYS OFF
  14. TRUQAP [Suspect]
     Active Substance: CAPIVASERTIB
     Dosage: DOSE UNKNOWN, 4 DAYS IN A ROW, FOLLOWED BY 3 DAYS OFF
     Route: 048
  15. TRUQAP [Suspect]
     Active Substance: CAPIVASERTIB
     Dosage: DOSE UNKNOWN, 4 DAYS IN A ROW, FOLLOWED BY 3 DAYS OFF
  16. TRUQAP [Suspect]
     Active Substance: CAPIVASERTIB
     Dosage: DOSE UNKNOWN, 4 DAYS IN A ROW, FOLLOWED BY 3 DAYS OFF
     Route: 048
  17. TRUQAP [Suspect]
     Active Substance: CAPIVASERTIB
     Dosage: DOSE UNKNOWN, 4 DAYS IN A ROW, FOLLOWED BY 3 DAYS OFF
  18. TRUQAP [Suspect]
     Active Substance: CAPIVASERTIB
     Dosage: DOSE UNKNOWN, 4 DAYS IN A ROW, FOLLOWED BY 3 DAYS OFF
     Route: 048
  19. TRUQAP [Suspect]
     Active Substance: CAPIVASERTIB
     Dosage: DOSE UNKNOWN, 4 DAYS IN A ROW, FOLLOWED BY 3 DAYS OFF
  20. TRUQAP [Suspect]
     Active Substance: CAPIVASERTIB
     Dosage: DOSE UNKNOWN, 4 DAYS IN A ROW, FOLLOWED BY 3 DAYS OFF
     Route: 048
  21. TRUQAP [Suspect]
     Active Substance: CAPIVASERTIB
  22. TRUQAP [Suspect]
     Active Substance: CAPIVASERTIB
     Route: 048
  23. TRUQAP [Suspect]
     Active Substance: CAPIVASERTIB
  24. TRUQAP [Suspect]
     Active Substance: CAPIVASERTIB
     Route: 048
  25. DEVICE [Suspect]
     Active Substance: DEVICE
  26. DEVICE [Suspect]
     Active Substance: DEVICE
  27. VERZENIO [Concomitant]
     Active Substance: ABEMACICLIB
     Indication: Breast cancer
     Route: 048
  28. VERZENIO [Concomitant]
     Active Substance: ABEMACICLIB
  29. CAPECITABINE [Concomitant]
     Active Substance: CAPECITABINE
     Indication: Breast cancer
     Dosage: DOSE UNKNOWN
     Route: 065
  30. CAPECITABINE [Concomitant]
     Active Substance: CAPECITABINE
     Dosage: DOSE UNKNOWN
     Route: 065
  31. CAPECITABINE [Concomitant]
     Active Substance: CAPECITABINE
     Dosage: DOSE UNKNOWN
     Route: 065
  32. CAPECITABINE [Concomitant]
     Active Substance: CAPECITABINE
     Dosage: DOSE UNKNOWN
     Route: 065
  33. CYCLOPHOSPHAMIDE [Concomitant]
     Active Substance: CYCLOPHOSPHAMIDE
     Indication: Breast cancer
     Dosage: DOSE UNKNOWN
     Route: 065
  34. CYCLOPHOSPHAMIDE [Concomitant]
     Active Substance: CYCLOPHOSPHAMIDE
     Dosage: DOSE UNKNOWN
     Route: 065
  35. CYCLOPHOSPHAMIDE [Concomitant]
     Active Substance: CYCLOPHOSPHAMIDE
     Dosage: DOSE UNKNOWN
     Route: 065
  36. CYCLOPHOSPHAMIDE [Concomitant]
     Active Substance: CYCLOPHOSPHAMIDE
     Dosage: DOSE UNKNOWN
     Route: 065
  37. DENOSUMAB [Concomitant]
     Active Substance: DENOSUMAB
     Dosage: DOSE UNKNOWN
     Route: 065
  38. DENOSUMAB [Concomitant]
     Active Substance: DENOSUMAB
     Dosage: DOSE UNKNOWN
     Route: 065
  39. HALAVEN [Concomitant]
     Active Substance: ERIBULIN MESYLATE
     Indication: Breast cancer
     Dosage: DOSE UNKNOWN
     Route: 065
  40. HALAVEN [Concomitant]
     Active Substance: ERIBULIN MESYLATE
     Dosage: DOSE UNKNOWN
     Route: 065
  41. HALAVEN [Concomitant]
     Active Substance: ERIBULIN MESYLATE
     Dosage: DOSE UNKNOWN
     Route: 065
  42. HALAVEN [Concomitant]
     Active Substance: ERIBULIN MESYLATE
     Dosage: DOSE UNKNOWN
     Route: 065
  43. ENHERTU [Concomitant]
     Active Substance: FAM-TRASTUZUMAB DERUXTECAN-NXKI
     Indication: Breast cancer
     Dosage: DOSE UNKNOWN
     Route: 065
  44. ENHERTU [Concomitant]
     Active Substance: FAM-TRASTUZUMAB DERUXTECAN-NXKI
     Dosage: DOSE UNKNOWN
     Route: 065
  45. FARESTON [Concomitant]
     Active Substance: TOREMIFENE CITRATE
     Indication: Breast cancer
     Dosage: DOSE UNKNOWN
     Route: 065
  46. FARESTON [Concomitant]
     Active Substance: TOREMIFENE CITRATE
     Dosage: DOSE UNKNOWN
     Route: 065
  47. PACLITAXEL [Concomitant]
     Active Substance: PACLITAXEL
     Indication: Breast cancer
     Dosage: DOSE UNKNOWN
     Route: 065
  48. PACLITAXEL [Concomitant]
     Active Substance: PACLITAXEL
     Dosage: DOSE UNKNOWN
     Route: 065
  49. DOXORUBICIN HYDROCHLORIDE [Concomitant]
     Active Substance: DOXORUBICIN HYDROCHLORIDE
     Indication: Breast cancer
     Dosage: DOSE UNKNOWN
     Route: 065
  50. DOXORUBICIN HYDROCHLORIDE [Concomitant]
     Active Substance: DOXORUBICIN HYDROCHLORIDE
     Dosage: DOSE UNKNOWN
     Route: 065
  51. CYCLOPHOSPHAMIDE ANHYDROUS [Concomitant]
     Active Substance: CYCLOPHOSPHAMIDE ANHYDROUS
     Indication: Breast cancer
     Dosage: DOSE UNKNOWN
     Route: 065
  52. CYCLOPHOSPHAMIDE ANHYDROUS [Concomitant]
     Active Substance: CYCLOPHOSPHAMIDE ANHYDROUS
     Dosage: DOSE UNKNOWN
     Route: 065
  53. CIPROFLOXACIN [Concomitant]
     Active Substance: CIPROFLOXACIN
     Dosage: DOSE UNKNOWN
     Route: 065
  54. CIPROFLOXACIN [Concomitant]
     Active Substance: CIPROFLOXACIN
     Dosage: DOSE UNKNOWN
     Route: 065
  55. HYDROMORPHONE HYDROCHLORIDE [Concomitant]
     Active Substance: HYDROMORPHONE HYDROCHLORIDE
     Dosage: DOSE UNKNOWN
     Route: 065
  56. HYDROMORPHONE HYDROCHLORIDE [Concomitant]
     Active Substance: HYDROMORPHONE HYDROCHLORIDE
     Dosage: DOSE UNKNOWN
     Route: 065

REACTIONS (1)
  - Type 2 diabetes mellitus [Recovered/Resolved]
